FAERS Safety Report 8983063 (Version 2)
Quarter: 2013Q1

REPORT INFORMATION
  Report Type: Spontaneous
  Country: AE (occurrence: AE)
  Receive Date: 20121224
  Receipt Date: 20130207
  Transmission Date: 20140127
  Serious: Yes (Life-Threatening, Hospitalization, Disabling, Other)
  Sender: FDA-Public Use
  Company Number: AE-RANBAXY-2012RR-63462

PATIENT
  Age: 28 Year
  Sex: Male

DRUGS (2)
  1. FLUOXETINE [Suspect]
     Dosage: 1.8 G, ON THE EVENING PRIOR TO ADMISSION
     Route: 065
  2. FLUOXETINE [Suspect]
     Indication: DEPRESSION
     Dosage: ON A SPORADIC BASIS
     Route: 065

REACTIONS (9)
  - Serotonin syndrome [Unknown]
  - Intentional overdose [Unknown]
  - Suicide attempt [Unknown]
  - Central nervous system necrosis [Unknown]
  - Cerebral ischaemia [Unknown]
  - Cerebral disorder [Unknown]
  - Parkinsonism [Unknown]
  - Gait apraxia [Unknown]
  - Cognitive disorder [Unknown]
